FAERS Safety Report 16413305 (Version 1)
Quarter: 2019Q2

REPORT INFORMATION
  Report Type: Report from Study
  Country: None (occurrence: AU)
  Receive Date: 20190611
  Receipt Date: 20190611
  Transmission Date: 20190711
  Serious: Yes (Hospitalization)
  Sender: FDA-Public Use
  Company Number: AU-ABBVIE-19K-008-2637115-00

PATIENT
  Sex: Male

DRUGS (3)
  1. HUMIRA [Suspect]
     Active Substance: ADALIMUMAB
     Route: 058
  2. HUMIRA [Suspect]
     Active Substance: ADALIMUMAB
     Indication: RHEUMATOID ARTHRITIS
     Route: 058
     Dates: start: 2017, end: 201707
  3. HUMIRA [Suspect]
     Active Substance: ADALIMUMAB
     Route: 058
     Dates: start: 20181119

REACTIONS (6)
  - Cardiac disorder [Recovered/Resolved]
  - Drug specific antibody [Unknown]
  - Cellulitis [Recovering/Resolving]
  - Musculoskeletal stiffness [Unknown]
  - Rheumatoid arthritis [Recovered/Resolved]
  - Feeling abnormal [Unknown]
